FAERS Safety Report 10068378 (Version 1)
Quarter: 2014Q2

REPORT INFORMATION
  Report Type: Spontaneous
  Country: BR (occurrence: BR)
  Receive Date: 20140409
  Receipt Date: 20140409
  Transmission Date: 20141212
  Serious: Yes (Other)
  Sender: FDA-Public Use
  Company Number: BR-PFIZER INC-2014099024

PATIENT
  Age: 36 Year
  Sex: Male

DRUGS (1)
  1. EFEXOR XR [Suspect]
     Dosage: 2 DF, DAILY
     Route: 048

REACTIONS (6)
  - Suicide attempt [Unknown]
  - Mania [Unknown]
  - Drug abuse [Unknown]
  - Depression [Unknown]
  - Compulsive shopping [Unknown]
  - Feeling of despair [Unknown]
